FAERS Safety Report 8460618-6 (Version None)
Quarter: 2012Q2

REPORT INFORMATION
  Report Type: 
  Country: None (occurrence: None)
  Receive Date: 20120622
  Receipt Date: 20120613
  Transmission Date: 20120825
  Serious: No
  Sender: FDA-Public Use
  Company Number: US-ASTRAZENECA-2012SE39825

PATIENT
  Age: 84 Year
  Sex: Female

DRUGS (1)
  1. NEXIUM [Suspect]
     Route: 048

REACTIONS (6)
  - DIVERTICULITIS [None]
  - DECREASED APPETITE [None]
  - DRUG DOSE OMISSION [None]
  - IMPAIRED WORK ABILITY [None]
  - HAEMORRHAGE [None]
  - RESPIRATORY DISORDER [None]
